FAERS Safety Report 13373959 (Version 1)
Quarter: 2017Q1

REPORT INFORMATION
  Report Type: Spontaneous
  Country: BR (occurrence: BR)
  Receive Date: 20170327
  Receipt Date: 20170327
  Transmission Date: 20170429
  Serious: Yes (Other)
  Sender: FDA-Public Use
  Company Number: BR-BAYER-2017-052155

PATIENT
  Age: 41 Year
  Sex: Female

DRUGS (4)
  1. QLAIRA [Suspect]
     Active Substance: DIENOGEST\ESTRADIOL VALERATE
     Indication: CONTRACEPTION
     Dosage: 28D/0D
     Route: 048
     Dates: start: 2014, end: 201612
  2. QLAIRA [Suspect]
     Active Substance: DIENOGEST\ESTRADIOL VALERATE
     Indication: ABDOMINAL PAIN LOWER
  3. AEROLIN [Concomitant]
     Active Substance: ALBUTEROL
     Indication: ASTHMA
     Dosage: 2 PUFFS AT NIGHT
     Dates: start: 1985
  4. QLAIRA [Suspect]
     Active Substance: DIENOGEST\ESTRADIOL VALERATE
     Indication: MENSTRUAL CYCLE MANAGEMENT

REACTIONS (4)
  - Invasive lobular breast carcinoma [Not Recovered/Not Resolved]
  - Prescription drug used without a prescription [None]
  - Breast mass [Not Recovered/Not Resolved]
  - Breast swelling [None]

NARRATIVE: CASE EVENT DATE: 201610
